FAERS Safety Report 19705250 (Version 1)
Quarter: 2021Q3

REPORT INFORMATION
  Report Type: Spontaneous
  Country: US (occurrence: US)
  Receive Date: 20210816
  Receipt Date: 20210816
  Transmission Date: 20211014
  Serious: Yes (Hospitalization)
  Sender: FDA-Public Use
  Company Number: None

PATIENT
  Sex: Female

DRUGS (8)
  1. HYDROCO/APAP [Concomitant]
     Active Substance: ACETAMINOPHEN\HYDROCODONE
  2. LETROZOLE. [Concomitant]
     Active Substance: LETROZOLE
  3. LEVETIRACETA [Concomitant]
     Active Substance: LEVETIRACETAM
  4. LORAZEPAM. [Concomitant]
     Active Substance: LORAZEPAM
  5. CAPECITABINE. [Suspect]
     Active Substance: CAPECITABINE
     Indication: BREAST CANCER FEMALE
     Route: 048
     Dates: start: 20181016
  6. EXEMESTANE. [Concomitant]
     Active Substance: EXEMESTANE
  7. DEXAMETHASON [Concomitant]
     Active Substance: DEXAMETHASONE
  8. FAMOTIDINE. [Concomitant]
     Active Substance: FAMOTIDINE

REACTIONS (2)
  - Brain operation [None]
  - Therapy interrupted [None]
